FAERS Safety Report 9523857 (Version 1)
Quarter: 2013Q3

REPORT INFORMATION
  Report Type: Spontaneous
  Country: US (occurrence: None)
  Receive Date: 20130912
  Receipt Date: 20130912
  Transmission Date: 20140515
  Serious: Yes (Death)
  Sender: FDA-Public Use
  Company Number: None

PATIENT
  Age: 72 Year
  Sex: Male

DRUGS (1)
  1. TEMOZOLOMIDE [Suspect]
     Dosage: 1 CAP DAILY FOR 5 DAYS
     Route: 048
     Dates: start: 20130212, end: 20130910

REACTIONS (2)
  - Depression [None]
  - Disease progression [None]
